FAERS Safety Report 4745841-6 (Version None)
Quarter: 2005Q3

REPORT INFORMATION
  Report Type: 
  Country: None (occurrence: None)
  Receive Date: 20050816
  Receipt Date: 20050803
  Transmission Date: 20060218
  Serious: Yes (Hospitalization, Other)
  Sender: FDA-Public Use
  Company Number: US-JNJFOC-20050701954

PATIENT
  Sex: Female
  Weight: 91.4 kg

DRUGS (23)
  1. REMICADE [Suspect]
     Route: 042
  2. REMICADE [Suspect]
     Indication: CROHN'S DISEASE
     Route: 042
  3. CALAZOL [Concomitant]
  4. DONNATAL EXTEND TAB [Concomitant]
  5. DONNATAL EXTEND TAB [Concomitant]
  6. DONNATAL EXTEND TAB [Concomitant]
  7. DONNATAL EXTEND TAB [Concomitant]
  8. K-DUR 10 [Concomitant]
  9. PAXIL [Concomitant]
  10. FUROSIMIDE [Concomitant]
  11. NORVASC [Concomitant]
  12. COZAAR [Concomitant]
  13. PROTONIX [Concomitant]
  14. LIPITOR [Concomitant]
  15. SINGULAIR [Concomitant]
  16. LORATADINE [Concomitant]
  17. AZOPT [Concomitant]
  18. LUMIGAN [Concomitant]
  19. CARTOLOL HYDROMINE [Concomitant]
  20. IMURAN [Concomitant]
  21. IMURAN [Concomitant]
     Indication: CROHN'S DISEASE
  22. VITAMINS [Concomitant]
  23. IRON [Concomitant]

REACTIONS (1)
  - LISTERIA SEPSIS [None]
